FAERS Safety Report 4787040-8 (Version None)
Quarter: 2005Q3

REPORT INFORMATION
  Report Type: 
  Country: None (occurrence: None)
  Receive Date: 20050930
  Receipt Date: 20050919
  Transmission Date: 20060218
  Serious: Yes (Death)
  Sender: FDA-Public Use
  Company Number: T05-ESP-02756-01

PATIENT
  Age: 90 Year
  Sex: Female

DRUGS (3)
  1. MEMANTINE HCL [Suspect]
     Indication: DEMENTIA ALZHEIMER'S TYPE
  2. STATINS [Concomitant]
  3. GALANTAMINE HYDROBROMIDE [Concomitant]

REACTIONS (1)
  - DEATH [None]
